FAERS Safety Report 7069391-X (Version None)
Quarter: 2010Q4

REPORT INFORMATION
  Report Type: 
  Country: None (occurrence: None)
  Receive Date: 20101028
  Receipt Date: 20101018
  Transmission Date: 20110411
  Serious: Yes (Death, Other)
  Sender: FDA-Public Use
  Company Number: GR-MPIJNJ-2010-04968

PATIENT

DRUGS (5)
  1. VELCADE [Suspect]
     Dosage: 1.3 MG/M2, CYCLIC
     Route: 042
     Dates: start: 20100319, end: 20100326
  2. VELCADE [Suspect]
     Dosage: 1.6 MG/M2, CYCLIC
     Route: 042
  3. DEXAMETHASONE [Suspect]
     Dosage: 40 MG, CYCLIC
     Route: 042
  4. RITUXIMAB [Suspect]
     Dosage: 375 MG/M2, CYCLIC
     Route: 042
  5. VALACICLOVIR [Concomitant]
     Indication: PROPHYLAXIS

REACTIONS (3)
  - CELLULITIS [None]
  - MULTI-ORGAN FAILURE [None]
  - SEPTIC SHOCK [None]
